FAERS Safety Report 4425830-1 (Version None)
Quarter: 2004Q3

REPORT INFORMATION
  Report Type: 
  Country: None (occurrence: None)
  Receive Date: 20040810
  Receipt Date: 20040727
  Transmission Date: 20050211
  Serious: Yes (Death, Hospitalization)
  Sender: FDA-Public Use
  Company Number: 2004226134AU

PATIENT
  Age: 74 Year
  Sex: Female

DRUGS (10)
  1. METHOTREXATE [Suspect]
     Indication: RHEUMATOID ARTHRITIS
  2. SULFASALAZINE [Suspect]
     Indication: RHEUMATOID ARTHRITIS
  3. LEFLUNOMIDE [Suspect]
     Indication: RHEUMATOID ARTHRITIS
  4. HYDROXYCHLOROQUINE SULFATE [Suspect]
     Indication: RHEUMATOID ARTHRITIS
  5. METHYLPREDNISOLONE [Concomitant]
  6. PREDNISOLONE [Concomitant]
  7. OMEPRAZOLE [Concomitant]
  8. DILTIAZEM [Concomitant]
  9. METOPROLOL [Concomitant]
  10. PAROXETINE HCL [Concomitant]

REACTIONS (1)
  - PANCYTOPENIA [None]
